FAERS Safety Report 8953295 (Version 6)
Quarter: 2013Q1

REPORT INFORMATION
  Report Type: Spontaneous
  Country: US (occurrence: US)
  Receive Date: 20121206
  Receipt Date: 20130211
  Transmission Date: 20140127
  Serious: Yes (Other)
  Sender: FDA-Public Use
  Company Number: US-009507513-1212USA000852

PATIENT
  Age: 54 None
  Sex: Male

DRUGS (2)
  1. PEGINTRON [Suspect]
     Indication: HEPATITIS C
     Dosage: UNK
     Dates: start: 20121130, end: 20130106
  2. RIBAVIRIN [Suspect]
     Indication: HEPATITIS C
     Dosage: UNK
     Route: 048
     Dates: start: 20121130, end: 20130106

REACTIONS (28)
  - Paranoia [Unknown]
  - Hyperhidrosis [Unknown]
  - Muscle spasms [Unknown]
  - Skin disorder [Unknown]
  - Pain [Unknown]
  - Myalgia [Unknown]
  - Headache [Unknown]
  - Pruritus [Unknown]
  - Influenza like illness [Unknown]
  - Injection site reaction [Unknown]
  - Fatigue [Unknown]
  - Nausea [Unknown]
  - Hypoglycaemia [Recovering/Resolving]
  - Headache [Recovering/Resolving]
  - Dizziness [Recovering/Resolving]
  - Decreased appetite [Unknown]
  - Pyrexia [Unknown]
  - Chills [Unknown]
  - Aphagia [Unknown]
  - Depression [Unknown]
  - Rash generalised [Unknown]
  - Pruritus generalised [Unknown]
  - Pyrexia [Unknown]
  - Aphagia [Unknown]
  - Pruritus generalised [Unknown]
  - Mental disorder [Unknown]
  - Anaemia [Unknown]
  - Haemoglobin decreased [Unknown]
